FAERS Safety Report 7323660-4 (Version None)
Quarter: 2011Q1

REPORT INFORMATION
  Report Type: 
  Country: None (occurrence: None)
  Receive Date: 20110301
  Receipt Date: 20110216
  Transmission Date: 20110831
  Serious: Yes (Other)
  Sender: FDA-Public Use
  Company Number: US-ELI_LILLY_AND_COMPANY-US201102005288

PATIENT
  Age: 52 Year
  Sex: Male

DRUGS (4)
  1. LORTAB [Concomitant]
  2. TRAMADOL HCL [Concomitant]
     Indication: PAIN
  3. EFFEXOR [Concomitant]
  4. PROZAC [Suspect]
     Indication: PAIN
     Dosage: 20 MG, DAILY (1/D)
     Dates: start: 20091102, end: 20100201

REACTIONS (20)
  - MYOCARDIAL INFARCTION [None]
  - ARTHRITIS [None]
  - NERVOUS SYSTEM DISORDER [None]
  - HAEMORRHOIDS [None]
  - ANAL FISSURE [None]
  - INTERVERTEBRAL DISC PROTRUSION [None]
  - DEPRESSION [None]
  - EYE DISORDER [None]
  - ROAD TRAFFIC ACCIDENT [None]
  - NECK INJURY [None]
  - COLONIC POLYP [None]
  - DIVERTICULITIS [None]
  - ARTERIOSCLEROSIS CORONARY ARTERY [None]
  - NERVE COMPRESSION [None]
  - INFECTION [None]
  - SPINAL DISORDER [None]
  - OFF LABEL USE [None]
  - MEMORY IMPAIRMENT [None]
  - BACK PAIN [None]
  - LARGE INTESTINAL ULCER [None]
